FAERS Safety Report 5383551-5 (Version None)
Quarter: 2007Q3

REPORT INFORMATION
  Report Type: 
  Country: None (occurrence: None)
  Receive Date: 20070706
  Receipt Date: 20070625
  Transmission Date: 20080115
  Serious: Yes (Hospitalization)
  Sender: FDA-Public Use
  Company Number: 2007-160419-NL

PATIENT
  Age: 38 Year
  Sex: Male

DRUGS (2)
  1. MIRTAZAPINE [Suspect]
     Dosage: 15 MG ORAL
     Route: 048
     Dates: start: 20070327, end: 20070328
  2. TIOTROPIUM BROMIDE [Concomitant]

REACTIONS (1)
  - RESTLESS LEGS SYNDROME [None]
